FAERS Safety Report 6184054-0 (Version None)
Quarter: 2009Q2

REPORT INFORMATION
  Report Type: 
  Country: None (occurrence: None)
  Receive Date: 20090508
  Receipt Date: 20090325
  Transmission Date: 20091009
  Serious: No
  Sender: FDA-Public Use
  Company Number: A0775208A

PATIENT
  Age: 68 Year

DRUGS (1)
  1. HYCAMTIN [Suspect]
     Indication: DRUG USE FOR UNKNOWN INDICATION
     Route: 065

REACTIONS (4)
  - DRY MOUTH [None]
  - DYSGEUSIA [None]
  - FATIGUE [None]
  - SOMNOLENCE [None]
